FAERS Safety Report 24753853 (Version 2)
Quarter: 2025Q2

REPORT INFORMATION
  Report Type: Spontaneous
  Country: DE (occurrence: DE)
  Receive Date: 20241219
  Receipt Date: 20250515
  Transmission Date: 20250717
  Serious: Yes (Other)
  Sender: MYLAN
  Company Number: DE-MYLANLABS-2024M1114130

PATIENT
  Age: 69 Year
  Sex: Male
  Weight: 76 kg

DRUGS (40)
  1. DOXORUBICIN [Suspect]
     Active Substance: DOXORUBICIN
     Indication: Diffuse large B-cell lymphoma
     Dosage: 50 MILLIGRAM/SQ. METER, Q3W
     Dates: start: 20200804, end: 20201222
  2. DOXORUBICIN [Suspect]
     Active Substance: DOXORUBICIN
     Dosage: 50 MILLIGRAM/SQ. METER, Q3W
     Route: 065
     Dates: start: 20200804, end: 20201222
  3. DOXORUBICIN [Suspect]
     Active Substance: DOXORUBICIN
     Dosage: 50 MILLIGRAM/SQ. METER, Q3W
     Route: 065
     Dates: start: 20200804, end: 20201222
  4. DOXORUBICIN [Suspect]
     Active Substance: DOXORUBICIN
     Dosage: 50 MILLIGRAM/SQ. METER, Q3W
     Dates: start: 20200804, end: 20201222
  5. GEMCITABINE [Suspect]
     Active Substance: GEMCITABINE
     Indication: Diffuse large B-cell lymphoma
     Dosage: 1000 MILLIGRAM/SQ. METER, Q3W
     Dates: start: 20210505, end: 20210621
  6. GEMCITABINE [Suspect]
     Active Substance: GEMCITABINE
     Dosage: 1000 MILLIGRAM/SQ. METER, Q3W
     Route: 065
     Dates: start: 20210505, end: 20210621
  7. GEMCITABINE [Suspect]
     Active Substance: GEMCITABINE
     Dosage: 1000 MILLIGRAM/SQ. METER, Q3W
     Route: 065
     Dates: start: 20210505, end: 20210621
  8. GEMCITABINE [Suspect]
     Active Substance: GEMCITABINE
     Dosage: 1000 MILLIGRAM/SQ. METER, Q3W
     Dates: start: 20210505, end: 20210621
  9. CARBOPLATIN [Suspect]
     Active Substance: CARBOPLATIN
     Indication: Diffuse large B-cell lymphoma
     Dosage: 4AUC
     Dates: start: 20210505, end: 20210621
  10. CARBOPLATIN [Suspect]
     Active Substance: CARBOPLATIN
     Dosage: 4AUC
     Route: 065
     Dates: start: 20210505, end: 20210621
  11. CARBOPLATIN [Suspect]
     Active Substance: CARBOPLATIN
     Dosage: 4AUC
     Route: 065
     Dates: start: 20210505, end: 20210621
  12. CARBOPLATIN [Suspect]
     Active Substance: CARBOPLATIN
     Dosage: 4AUC
     Dates: start: 20210505, end: 20210621
  13. DEXAMETHASONE [Suspect]
     Active Substance: DEXAMETHASONE
     Indication: Diffuse large B-cell lymphoma
     Dosage: 40 MILLIGRAM, Q3W; AS A PART OF R-GDP REGIMEN
     Dates: start: 20210505, end: 20210621
  14. DEXAMETHASONE [Suspect]
     Active Substance: DEXAMETHASONE
     Dosage: 40 MILLIGRAM, Q3W; AS A PART OF R-GDP REGIMEN
     Route: 065
     Dates: start: 20210505, end: 20210621
  15. DEXAMETHASONE [Suspect]
     Active Substance: DEXAMETHASONE
     Dosage: 40 MILLIGRAM, Q3W; AS A PART OF R-GDP REGIMEN
     Route: 065
     Dates: start: 20210505, end: 20210621
  16. DEXAMETHASONE [Suspect]
     Active Substance: DEXAMETHASONE
     Dosage: 40 MILLIGRAM, Q3W; AS A PART OF R-GDP REGIMEN
     Dates: start: 20210505, end: 20210621
  17. RITUXIMAB [Suspect]
     Active Substance: RITUXIMAB
     Indication: Diffuse large B-cell lymphoma
     Dosage: 375 MILLIGRAM/SQ. METER, Q3W
     Dates: start: 20200730, end: 20210616
  18. RITUXIMAB [Suspect]
     Active Substance: RITUXIMAB
     Dosage: 375 MILLIGRAM/SQ. METER, Q3W
     Route: 065
     Dates: start: 20200730, end: 20210616
  19. RITUXIMAB [Suspect]
     Active Substance: RITUXIMAB
     Dosage: 375 MILLIGRAM/SQ. METER, Q3W
     Route: 065
     Dates: start: 20200730, end: 20210616
  20. RITUXIMAB [Suspect]
     Active Substance: RITUXIMAB
     Dosage: 375 MILLIGRAM/SQ. METER, Q3W
     Dates: start: 20200730, end: 20210616
  21. CYCLOPHOSPHAMIDE [Suspect]
     Active Substance: CYCLOPHOSPHAMIDE
     Indication: Diffuse large B-cell lymphoma
     Dosage: 750 MILLIGRAM/SQ. METER, Q3W; AS A PART OF R-CHOP REGIMEN
     Dates: start: 20200804, end: 20201222
  22. CYCLOPHOSPHAMIDE [Suspect]
     Active Substance: CYCLOPHOSPHAMIDE
     Dosage: 750 MILLIGRAM/SQ. METER, Q3W; AS A PART OF R-CHOP REGIMEN
     Route: 065
     Dates: start: 20200804, end: 20201222
  23. CYCLOPHOSPHAMIDE [Suspect]
     Active Substance: CYCLOPHOSPHAMIDE
     Dosage: 750 MILLIGRAM/SQ. METER, Q3W; AS A PART OF R-CHOP REGIMEN
     Route: 065
     Dates: start: 20200804, end: 20201222
  24. CYCLOPHOSPHAMIDE [Suspect]
     Active Substance: CYCLOPHOSPHAMIDE
     Dosage: 750 MILLIGRAM/SQ. METER, Q3W; AS A PART OF R-CHOP REGIMEN
     Dates: start: 20200804, end: 20201222
  25. VINCRISTINE [Suspect]
     Active Substance: VINCRISTINE
     Indication: Diffuse large B-cell lymphoma
     Dosage: 2 MILLIGRAM, Q3W; AS A PART OF R-CHOP REGIMEN
     Dates: start: 20200804, end: 20201222
  26. VINCRISTINE [Suspect]
     Active Substance: VINCRISTINE
     Dosage: 2 MILLIGRAM, Q3W; AS A PART OF R-CHOP REGIMEN
     Route: 065
     Dates: start: 20200804, end: 20201222
  27. VINCRISTINE [Suspect]
     Active Substance: VINCRISTINE
     Dosage: 2 MILLIGRAM, Q3W; AS A PART OF R-CHOP REGIMEN
     Route: 065
     Dates: start: 20200804, end: 20201222
  28. VINCRISTINE [Suspect]
     Active Substance: VINCRISTINE
     Dosage: 2 MILLIGRAM, Q3W; AS A PART OF R-CHOP REGIMEN
     Dates: start: 20200804, end: 20201222
  29. PREDNISONE [Suspect]
     Active Substance: PREDNISONE
     Indication: Diffuse large B-cell lymphoma
     Dosage: 100 MILLIGRAM, Q3W
     Dates: start: 20200804, end: 20201222
  30. PREDNISONE [Suspect]
     Active Substance: PREDNISONE
     Dosage: 100 MILLIGRAM, Q3W
     Route: 065
     Dates: start: 20200804, end: 20201222
  31. PREDNISONE [Suspect]
     Active Substance: PREDNISONE
     Dosage: 100 MILLIGRAM, Q3W
     Route: 065
     Dates: start: 20200804, end: 20201222
  32. PREDNISONE [Suspect]
     Active Substance: PREDNISONE
     Dosage: 100 MILLIGRAM, Q3W
     Dates: start: 20200804, end: 20201222
  33. IBRUTINIB [Concomitant]
     Active Substance: IBRUTINIB
     Indication: Lymphodepletion
  34. IBRUTINIB [Concomitant]
     Active Substance: IBRUTINIB
     Route: 065
  35. IBRUTINIB [Concomitant]
     Active Substance: IBRUTINIB
     Route: 065
  36. IBRUTINIB [Concomitant]
     Active Substance: IBRUTINIB
  37. FLUDARABINE [Concomitant]
     Active Substance: FLUDARABINE PHOSPHATE
     Indication: Lymphodepletion
  38. FLUDARABINE [Concomitant]
     Active Substance: FLUDARABINE PHOSPHATE
     Route: 065
  39. FLUDARABINE [Concomitant]
     Active Substance: FLUDARABINE PHOSPHATE
     Route: 065
  40. FLUDARABINE [Concomitant]
     Active Substance: FLUDARABINE PHOSPHATE

REACTIONS (1)
  - Drug ineffective [Unknown]
